FAERS Safety Report 19719136 (Version 1)
Quarter: 2021Q3

REPORT INFORMATION
  Report Type: Spontaneous
  Country: US (occurrence: US)
  Receive Date: 20210819
  Receipt Date: 20210819
  Transmission Date: 20211014
  Serious: Yes (Hospitalization)
  Sender: FDA-Public Use
  Company Number: None

PATIENT
  Age: 22 Year
  Sex: Female
  Weight: 54.45 kg

DRUGS (4)
  1. REGEN?COV [Suspect]
     Active Substance: CASIRIVIMAB\IMDEVIMAB
     Indication: COVID-19
     Dosage: ?          OTHER FREQUENCY:ONCE;?
     Route: 042
     Dates: start: 20210814, end: 20210814
  2. SODIUM CHLORIDE 09% 1 LITER [Concomitant]
     Dates: start: 20210814, end: 20210814
  3. BENADRYL 50MG IV [Concomitant]
     Dates: start: 20210814, end: 20210814
  4. ZOFRAN 4MG IV [Concomitant]
     Dates: start: 20210814, end: 20210814

REACTIONS (1)
  - Hypotension [None]

NARRATIVE: CASE EVENT DATE: 20210814
